FAERS Safety Report 4451520-5 (Version None)
Quarter: 2004Q3

REPORT INFORMATION
  Report Type: 
  Country: None (occurrence: None)
  Receive Date: 20040915
  Receipt Date: 20040907
  Transmission Date: 20050211
  Serious: Yes (Other)
  Sender: FDA-Public Use
  Company Number: 2004232300US

PATIENT
  Sex: Female

DRUGS (5)
  1. PROVERA [Suspect]
     Dosage: 2.5MG
     Dates: start: 19900530, end: 19930801
  2. PROVERA [Suspect]
     Dosage: 2.5MG
     Dates: start: 19940804
  3. PREMARIN [Suspect]
     Dosage: 0.625 MG
     Dates: start: 19900530, end: 19930801
  4. PREMARIN [Suspect]
     Dosage: 0.625 MG
     Dates: start: 19940804
  5. PREMPRO [Suspect]
     Dates: start: 19980101, end: 20011201

REACTIONS (2)
  - BREAST CANCER FEMALE [None]
  - IMPAIRED HEALING [None]
